FAERS Safety Report 7310498-7 (Version None)
Quarter: 2011Q1

REPORT INFORMATION
  Report Type: 
  Country: None (occurrence: None)
  Receive Date: 20110224
  Receipt Date: 20101201
  Transmission Date: 20110831
  Serious: No
  Sender: FDA-Public Use
  Company Number: US-BRISTOL-MYERS SQUIBB COMPANY-15356934

PATIENT
  Age: 71 Year
  Sex: Female

DRUGS (6)
  1. CARVEDILOL [Concomitant]
  2. PLAVIX [Concomitant]
  3. GYMNEMA HERBAL TEA [Concomitant]
  4. METFORMIN HCL [Suspect]
     Indication: DIABETES MELLITUS
     Route: 048
     Dates: start: 20070701
  5. SYNTHROID [Concomitant]
  6. ZETIA [Concomitant]

REACTIONS (1)
  - BLOOD GLUCOSE FLUCTUATION [None]
